FAERS Safety Report 9065303 (Version 2)
Quarter: 2013Q1

REPORT INFORMATION
  Report Type: Spontaneous
  Country: US (occurrence: US)
  Receive Date: 20130214
  Receipt Date: 20130318
  Transmission Date: 20140127
  Serious: No
  Sender: FDA-Public Use
  Company Number: US-009507513-1302USA004751

PATIENT
  Sex: Female

DRUGS (9)
  1. PEGINTRON [Suspect]
     Dosage: 80 MICROGRAM (0.5ML), EVERY WEEK
     Route: 058
  2. RIBAPAK [Suspect]
     Dosage: 1000 MG, DAY
  3. AMBIEN [Concomitant]
     Dosage: 5 MG
  4. PROMETHAZINE [Concomitant]
  5. CYANOCOBALAMIN [Concomitant]
     Dosage: 1000 CR
  6. VITAMINS (UNSPECIFIED) [Concomitant]
  7. VITAMIN A [Concomitant]
  8. CLARITIN [Concomitant]
  9. ESTRADIOL [Concomitant]

REACTIONS (7)
  - Insomnia [Unknown]
  - Eye pain [Unknown]
  - Dysgeusia [Unknown]
  - Headache [Unknown]
  - Nausea [Unknown]
  - Fatigue [Unknown]
  - Photophobia [Unknown]
